FAERS Safety Report 14078539 (Version 1)
Quarter: 2017Q4

REPORT INFORMATION
  Report Type: Spontaneous
  Country: US (occurrence: None)
  Receive Date: 20171012
  Receipt Date: 20171012
  Transmission Date: 20180321
  Serious: Yes (Hospitalization)
  Sender: FDA-Public Use
  Company Number: None

PATIENT
  Age: 67 Year
  Sex: Female
  Weight: 137 kg

DRUGS (3)
  1. 5-FLUOROURACIL (5-FU) [Suspect]
     Active Substance: FLUOROURACIL
     Dates: end: 20150401
  2. CYCLOPHOSPHAMIDE. [Suspect]
     Active Substance: CYCLOPHOSPHAMIDE
     Dates: end: 20150401
  3. ELLENCE [Suspect]
     Active Substance: EPIRUBICIN HYDROCHLORIDE
     Dates: end: 20150401

REACTIONS (7)
  - Non-cardiogenic pulmonary oedema [None]
  - Dyspnoea [None]
  - Pyrexia [None]
  - Infection [None]
  - Acute myeloid leukaemia [None]
  - Procedural hypotension [None]
  - Chest X-ray abnormal [None]

NARRATIVE: CASE EVENT DATE: 20170926
